FAERS Safety Report 5975535-0 (Version None)
Quarter: 2008Q4

REPORT INFORMATION
  Report Type: 
  Country: None (occurrence: None)
  Receive Date: 20081202
  Receipt Date: 20080827
  Transmission Date: 20090506
  Serious: No
  Sender: FDA-Public Use
  Company Number: A0744542A

PATIENT

DRUGS (2)
  1. AUGMENTIN '125' [Suspect]
     Indication: DRUG USE FOR UNKNOWN INDICATION
  2. OMNICEF [Suspect]
     Indication: DRUG USE FOR UNKNOWN INDICATION

REACTIONS (1)
  - VOMITING [None]
